FAERS Safety Report 5653940-X (Version None)
Quarter: 2008Q1

REPORT INFORMATION
  Report Type: 
  Country: None (occurrence: None)
  Receive Date: 20080206
  Receipt Date: 20071114
  Transmission Date: 20080703
  Serious: Yes (Hospitalization)
  Sender: FDA-Public Use
  Company Number: US200710006600

PATIENT
  Age: 64 Year
  Sex: Female
  Weight: 109.3 kg

DRUGS (7)
  1. EVISTA [Suspect]
     Indication: OSTEOPOROSIS
     Dosage: 60 MG,ORAL
     Route: 048
     Dates: end: 20071001
  2. TOPROL-XL [Concomitant]
  3. LIPITOR [Concomitant]
  4. HYDROCHLOROTHIAZIDE [Concomitant]
  5. CALCIUM CARBONATE [Concomitant]
  6. PRILOSEC [Concomitant]
  7. AVAPRO [Concomitant]

REACTIONS (1)
  - PULMONARY EMBOLISM [None]
